FAERS Safety Report 5881424-2 (Version None)
Quarter: 2008Q3

REPORT INFORMATION
  Report Type: 
  Country: None (occurrence: None)
  Receive Date: 20080912
  Receipt Date: 20080714
  Transmission Date: 20090109
  Serious: No
  Sender: FDA-Public Use
  Company Number: US-ABBOTT-08P-163-0460409-00

PATIENT
  Sex: Male
  Weight: 44.038 kg

DRUGS (2)
  1. HUMIRA [Suspect]
     Indication: CROHN'S DISEASE
     Route: 058
     Dates: start: 20080328
  2. NASOGASTRIC FEEDINGS [Concomitant]
     Indication: WEIGHT GAIN POOR
     Dosage: FOUR TO FIVE NIGHTS PER WEEK
     Route: 050
     Dates: start: 20070801

REACTIONS (10)
  - DYSPNOEA [None]
  - HEADACHE [None]
  - HYPERSENSITIVITY [None]
  - LIP SWELLING [None]
  - LYMPHADENOPATHY [None]
  - OEDEMA PERIPHERAL [None]
  - PRURITUS [None]
  - SWELLING [None]
  - TONSILLAR INFLAMMATION [None]
  - WEIGHT DECREASED [None]
